FAERS Safety Report 4452359-7 (Version None)
Quarter: 2004Q3

REPORT INFORMATION
  Report Type: 
  Country: None (occurrence: None)
  Receive Date: 20040915
  Receipt Date: 20040902
  Transmission Date: 20050211
  Serious: Yes (Life-Threatening)
  Sender: FDA-Public Use
  Company Number: US013627

PATIENT
  Age: 48 Year
  Sex: Male

DRUGS (5)
  1. PROVIGIL [Suspect]
     Indication: NARCOLEPSY
     Dosage: 200 MG BID ORAL
     Route: 048
     Dates: start: 20000101
  2. CARDURA XL [Suspect]
     Dosage: 4 MG QD ORAL
     Route: 048
     Dates: start: 20040728, end: 20040816
  3. CARDURA XL [Suspect]
     Dosage: 2 MG QD ORAL
     Route: 048
     Dates: start: 20040820
  4. BENDROFLUAZIDE [Concomitant]
  5. ZANTAC [Concomitant]

REACTIONS (3)
  - DRUG INEFFECTIVE [None]
  - DRUG INTERACTION [None]
  - RASH [None]
